FAERS Safety Report 5741778-4 (Version None)
Quarter: 2008Q2

REPORT INFORMATION
  Report Type: 
  Country: None (occurrence: None)
  Receive Date: 20080519
  Receipt Date: 20080505
  Transmission Date: 20081010
  Serious: Yes (Hospitalization)
  Sender: FDA-Public Use
  Company Number: US-BAYER-US-SHR-03-009908

PATIENT
  Age: 51 Year
  Sex: Female
  Weight: 54 kg

DRUGS (13)
  1. BETASERON [Suspect]
     Indication: MULTIPLE SCLEROSIS
     Dosage: TOTAL DAILY DOSE: 8 MIU
     Route: 058
     Dates: start: 19940804
  2. NEURONTIN [Concomitant]
     Indication: PAIN
  3. DEPAKOTE [Concomitant]
     Indication: PAIN
  4. ENALAPRIL MALEATE [Concomitant]
     Indication: HYPERTENSION
  5. PERCOCET [Concomitant]
     Indication: PAIN
  6. AMBIEN [Concomitant]
     Indication: INSOMNIA
  7. LEVODOPA [Concomitant]
     Indication: RESTLESS LEGS SYNDROME
  8. PROVIGIL [Concomitant]
     Indication: FATIGUE
  9. MARIJUANA [Concomitant]
     Indication: PAIN
  10. BACLOFEN [Concomitant]
     Indication: MUSCLE SPASTICITY
  11. IBUPROFEN [Concomitant]
     Indication: PAIN
  12. VITAMINS [Concomitant]
  13. MINERALS NOS [Concomitant]

REACTIONS (1)
  - BREAST CANCER FEMALE [None]
